FAERS Safety Report 14375042 (Version 1)
Quarter: 2018Q1

REPORT INFORMATION
  Report Type: Spontaneous
  Country: US (occurrence: US)
  Receive Date: 20180110
  Receipt Date: 20180110
  Transmission Date: 20180509
  Serious: Yes (Hospitalization)
  Sender: FDA-Public Use
  Company Number: None

PATIENT
  Age: 55 Year
  Sex: Male
  Weight: 134 kg

DRUGS (3)
  1. LEUCOVORIN CALCIUM. [Suspect]
     Active Substance: LEUCOVORIN CALCIUM
     Dates: end: 20170424
  2. 5-FLUOROURACIL (5-FU) [Suspect]
     Active Substance: FLUOROURACIL
     Dates: end: 20170424
  3. ELOXATIN [Suspect]
     Active Substance: OXALIPLATIN
     Dates: end: 20170424

REACTIONS (8)
  - Acute respiratory failure [None]
  - Sepsis [None]
  - Anastomotic leak [None]
  - Peritonitis [None]
  - Haemorrhage [None]
  - Hyperglycaemia [None]
  - Malnutrition [None]
  - Acute kidney injury [None]

NARRATIVE: CASE EVENT DATE: 20170610
